FAERS Safety Report 14324713 (Version 1)
Quarter: 2017Q4

REPORT INFORMATION
  Report Type: Spontaneous
  Country: US (occurrence: US)
  Receive Date: 20171226
  Receipt Date: 20171226
  Transmission Date: 20180321
  Serious: Yes (Other)
  Sender: FDA-Public Use
  Company Number: US-DSJP-DSU-2017-148426

PATIENT

DRUGS (2)
  1. BENICAR [Suspect]
     Active Substance: OLMESARTAN MEDOXOMIL
     Indication: HYPERTENSION
     Dosage: 20 MG, QD
     Route: 048
     Dates: start: 20040805, end: 20150307
  2. BENICAR [Suspect]
     Active Substance: OLMESARTAN MEDOXOMIL
     Dosage: 40 MG, UNK
     Dates: start: 20040805, end: 20150307

REACTIONS (5)
  - Acute kidney injury [Unknown]
  - Gastroenteritis viral [Unknown]
  - Sprue-like enteropathy [Recovering/Resolving]
  - Diverticulitis [Unknown]
  - Hypotension [Unknown]

NARRATIVE: CASE EVENT DATE: 20090320
